FAERS Safety Report 18079397 (Version 1)
Quarter: 2020Q3

REPORT INFORMATION
  Report Type: Spontaneous
  Country: KR (occurrence: KR)
  Receive Date: 20200728
  Receipt Date: 20200728
  Transmission Date: 20201103
  Serious: Yes (Death, Other)
  Sender: FDA-Public Use
  Company Number: KR-JAZZ-2020-KR-009285

PATIENT
  Sex: Male
  Weight: 56.7 kg

DRUGS (1)
  1. DEFITELIO [Suspect]
     Active Substance: DEFIBROTIDE SODIUM
     Indication: VENOOCCLUSIVE DISEASE
     Dosage: UNKNOWN DOSE
     Route: 065
     Dates: start: 20200710, end: 20200721

REACTIONS (2)
  - Condition aggravated [Fatal]
  - Lymphoma [Fatal]
